FAERS Safety Report 18466279 (Version 1)
Quarter: 2020Q4

REPORT INFORMATION
  Report Type: Spontaneous
  Country: CN (occurrence: CN)
  Receive Date: 20201105
  Receipt Date: 20201105
  Transmission Date: 20210114
  Serious: Yes (Other)
  Sender: FDA-Public Use
  Company Number: CN-BAXTER-2020BAX022289

PATIENT
  Age: 4 Year
  Sex: Male
  Weight: 17.2 kg

DRUGS (10)
  1. 0.9% SODIUM CHLORIDE INJECTION [Suspect]
     Active Substance: SODIUM CHLORIDE
     Dosage: 0.9% SODIUM CHLORIDE + CYTARABINE, DOSE REINTRODUCED
     Route: 058
  2. MERCAPTOPURINE. [Suspect]
     Active Substance: MERCAPTOPURINE
     Indication: ACUTE LYMPHOCYTIC LEUKAEMIA
     Dosage: DOSAGE FORM: TABLET, FREQUENCY: EVERY NIGHT [QN]
     Route: 048
     Dates: start: 20200918, end: 20200922
  3. ENDOXAN [Suspect]
     Active Substance: CYCLOPHOSPHAMIDE
     Dosage: (4:1) GLUCOSE AND SODIUM CHLORIDE + CYCLOPHOSPHAMIDE, DOSE REINTRODUCED
     Route: 041
  4. 5% GLUCOSE AND 0.9% SODIUM CHLORIDE INJECTION [Suspect]
     Active Substance: DEXTROSE\SODIUM CHLORIDE
     Dosage: (4:1) GLUCOSE AND SODIUM CHLORIDE + CYCLOPHOSPHAMIDE, DOSE REINTRODUCED
     Route: 041
  5. ENDOXAN [Suspect]
     Active Substance: CYCLOPHOSPHAMIDE
     Indication: ACUTE LYMPHOCYTIC LEUKAEMIA
     Dosage: (4:1) GLUCOSE AND SODIUM CHLORIDE 250ML + CYCLOPHOSPHAMIDE 0.718G
     Route: 041
     Dates: start: 20200918, end: 20200918
  6. 5% GLUCOSE AND 0.9% SODIUM CHLORIDE INJECTION [Suspect]
     Active Substance: DEXTROSE\SODIUM CHLORIDE
     Indication: MEDICATION DILUTION
     Dosage: (4:1) GLUCOSE AND SODIUM CHLORIDE 250ML + CYCLOPHOSPHAMIDE 0.718G
     Route: 041
     Dates: start: 20200918, end: 20200918
  7. 0.9% SODIUM CHLORIDE INJECTION [Suspect]
     Active Substance: SODIUM CHLORIDE
     Indication: MEDICATION DILUTION
     Dosage: 0.9% SODIUM CHLORIDE 1ML + CYTARABINE 0.027G
     Route: 058
     Dates: start: 20200918, end: 20200922
  8. MERCAPTOPURINE. [Suspect]
     Active Substance: MERCAPTOPURINE
     Dosage: DOSE REINTRODUCED, DOSAGE FORM: TABLET, FREQUENCY: EVERY NIGHT [QN]
     Route: 048
  9. CYTARABINE. [Suspect]
     Active Substance: CYTARABINE
     Dosage: 0.9% SODIUM CHLORIDE + CYTARABINE, DOSE REINTRODUCED
     Route: 058
  10. CYTARABINE. [Suspect]
     Active Substance: CYTARABINE
     Indication: ACUTE LYMPHOCYTIC LEUKAEMIA
     Dosage: 0.9% SODIUM CHLORIDE 1ML + CYTARABINE 0.027G
     Route: 058
     Dates: start: 20200918, end: 20200922

REACTIONS (1)
  - Myelosuppression [Recovering/Resolving]

NARRATIVE: CASE EVENT DATE: 20200922
